FAERS Safety Report 20148668 (Version 1)
Quarter: 2021Q4

REPORT INFORMATION
  Report Type: Report from Study
  Country: EG (occurrence: EG)
  Receive Date: 20211204
  Receipt Date: 20211204
  Transmission Date: 20220304
  Serious: Yes (Hospitalization, Other)
  Sender: FDA-Public Use
  Company Number: EG-NOVARTISPH-NVSC2021EG273994

PATIENT
  Age: 70 Year
  Sex: Female

DRUGS (2)
  1. GLIVEC [Suspect]
     Active Substance: IMATINIB MESYLATE
     Indication: Chronic myeloid leukaemia
     Dosage: 4 DOSAGE FORM, QD
     Route: 065
     Dates: start: 2019, end: 2021
  2. HYDREA [Suspect]
     Active Substance: HYDROXYUREA
     Indication: Chronic myeloid leukaemia
     Dosage: 3 DOSAGE FORM, QD
     Route: 065
     Dates: start: 2021, end: 202110

REACTIONS (2)
  - Intracardiac thrombus [Recovered/Resolved]
  - Polymerase chain reaction positive [Not Recovered/Not Resolved]

NARRATIVE: CASE EVENT DATE: 20210131
